FAERS Safety Report 6401322-5 (Version None)
Quarter: 2009Q4

REPORT INFORMATION
  Report Type: 
  Country: None (occurrence: None)
  Receive Date: 20091015
  Receipt Date: 20070321
  Transmission Date: 20100525
  Serious: Yes (Disabling)
  Sender: FDA-Public Use
  Company Number: US-ASTRAZENECA-2006UW11086

PATIENT
  Sex: Female
  Weight: 113.4 kg

DRUGS (1)
  1. SEROQUEL [Suspect]
     Dosage: 50-200 MG
     Route: 048
     Dates: start: 20040701

REACTIONS (1)
  - ILL-DEFINED DISORDER [None]
